FAERS Safety Report 4975113-6 (Version None)
Quarter: 2006Q2

REPORT INFORMATION
  Report Type: 
  Country: None (occurrence: None)
  Receive Date: 20060411
  Receipt Date: 20060306
  Transmission Date: 20061013
  Serious: Yes (Hospitalization)
  Sender: FDA-Public Use
  Company Number: 2006000547

PATIENT
  Age: 52 Year
  Sex: Female

DRUGS (2)
  1. TARCEVA [Suspect]
     Indication: NON-SMALL CELL LUNG CANCER
     Dosage: 150 MG, ORAL
     Route: 048
     Dates: start: 20051130, end: 20060108
  2. GEMCITABINE [Concomitant]

REACTIONS (6)
  - CUTIS LAXA [None]
  - FLUSHING [None]
  - LOCALISED INFECTION [None]
  - PRURITUS [None]
  - SKIN EROSION [None]
  - WOUND [None]
